FAERS Safety Report 5963625-8 (Version None)
Quarter: 2008Q4

REPORT INFORMATION
  Report Type: 
  Country: None (occurrence: None)
  Receive Date: 20081124
  Receipt Date: 20081118
  Transmission Date: 20090506
  Serious: Yes (Other)
  Sender: FDA-Public Use
  Company Number: DE-ALLERGAN-0814656US

PATIENT

DRUGS (1)
  1. BOTOX [Suspect]
     Indication: BLADDER DISORDER
     Dosage: 200 UNITS, SINGLE
     Dates: start: 20080101, end: 20080101

REACTIONS (1)
  - URINARY RETENTION [None]
